FAERS Safety Report 9027889 (Version 1)
Quarter: 2013Q1

REPORT INFORMATION
  Report Type: Spontaneous
  Country: JP (occurrence: JP)
  Receive Date: 20130124
  Receipt Date: 20130124
  Transmission Date: 20140127
  Serious: Yes (Other)
  Sender: FDA-Public Use
  Company Number: JP-009507513-1301JPN010004

PATIENT
  Age: 12 Year
  Sex: Female
  Weight: 48 kg

DRUGS (7)
  1. DECADRON [Suspect]
     Indication: ACUTE LYMPHOCYTIC LEUKAEMIA
     Dosage: 14.5 MG, QD
     Route: 048
     Dates: start: 20120821, end: 20120906
  2. DEXART [Suspect]
     Indication: ACUTE LYMPHOCYTIC LEUKAEMIA
     Dosage: 15 MG, QD
     Route: 041
     Dates: start: 20120907, end: 20120910
  3. DEXART [Suspect]
     Dosage: UNK
     Route: 041
     Dates: start: 20120911, end: 20120917
  4. ONCOVIN [Suspect]
     Indication: ACUTE LYMPHOCYTIC LEUKAEMIA
     Dosage: 2 MG, QD
     Route: 042
     Dates: start: 20120828, end: 20120828
  5. ONCOVIN [Suspect]
     Dosage: 2 MG, QD
     Route: 041
     Dates: start: 20120904, end: 20120911
  6. DOXORUBICIN HYDROCHLORIDE [Concomitant]
     Route: 042
  7. LEUNASE [Concomitant]
     Route: 041

REACTIONS (2)
  - Hyponatraemia [Recovered/Resolved]
  - Diabetes mellitus [Recovered/Resolved]
